FAERS Safety Report 9143784 (Version 3)
Quarter: 2013Q2

REPORT INFORMATION
  Report Type: Report from Study
  Country: BR (occurrence: BR)
  Receive Date: 20130306
  Receipt Date: 20130510
  Transmission Date: 20140414
  Serious: Yes (Hospitalization, Other)
  Sender: FDA-Public Use
  Company Number: BR-ROCHE-784793

PATIENT
  Age: 66 Year
  Sex: Female
  Weight: 46 kg

DRUGS (7)
  1. MABTHERA [Suspect]
     Indication: RHEUMATOID ARTHRITIS
     Dosage: DAY 15 01/OCT/2010, LAST CYCLE : D1 ON 30/APR/2013 AND DAY 15 FOR 16/MAY/2013
     Route: 042
  2. MABTHERA [Suspect]
     Route: 042
  3. PARIET [Concomitant]
     Dosage: DOSE: 10 OR 20 MG.
     Route: 065
  4. ARIMIDEX [Concomitant]
  5. LINSEED OIL [Concomitant]
  6. CHONDROITIN [Concomitant]
  7. TYLENOL [Concomitant]

REACTIONS (9)
  - Cataract [Not Recovered/Not Resolved]
  - Breast cancer [Not Recovered/Not Resolved]
  - Throat irritation [Recovered/Resolved]
  - Eye pain [Not Recovered/Not Resolved]
  - Fatigue [Unknown]
  - Headache [Unknown]
  - Diarrhoea [Unknown]
  - Chromaturia [Unknown]
  - Pallor [Unknown]
